FAERS Safety Report 19423760 (Version 1)
Quarter: 2021Q2

REPORT INFORMATION
  Report Type: Spontaneous
  Country: US (occurrence: US)
  Receive Date: 20210616
  Receipt Date: 20210616
  Transmission Date: 20210717
  Serious: No
  Sender: FDA-Public Use
  Company Number: US-PFIZER INC-2021390932

PATIENT
  Age: 62 Year
  Sex: Female
  Weight: 117.9 kg

DRUGS (3)
  1. LUTEIN [Concomitant]
     Active Substance: LUTEIN
     Dosage: UNK
  2. IBRANCE [Suspect]
     Active Substance: PALBOCICLIB
     Indication: BREAST CANCER FEMALE
     Dosage: 125 MG, CYCLIC (3 WEEKS ON THEN 1 WEEK OFF)
     Route: 048
     Dates: start: 20210317
  3. STOOL SOFTENER (DOCUSATE) [Concomitant]
     Active Substance: DOCUSATE
     Dosage: UNK

REACTIONS (2)
  - Body temperature decreased [Unknown]
  - Feeling cold [Unknown]
